FAERS Safety Report 5352827-X (Version None)
Quarter: 2007Q2

REPORT INFORMATION
  Report Type: 
  Country: None (occurrence: None)
  Receive Date: 20070611
  Receipt Date: 20070531
  Transmission Date: 20071010
  Serious: No
  Sender: FDA-Public Use
  Company Number: US-ASTRAZENECA-2006UW07823

PATIENT
  Age: 40 Year
  Sex: Female
  Weight: 50 kg

DRUGS (6)
  1. SEROQUEL [Suspect]
     Indication: SCHIZOPHRENIA
     Dosage: 200MG - 300MG
     Route: 048
     Dates: start: 20040101
  2. SEROQUEL [Suspect]
     Indication: SLEEP DISORDER
     Dosage: 200MG - 300MG
     Route: 048
     Dates: start: 20040101
  3. GLYBURIDE [Concomitant]
  4. ZYPREXA [Concomitant]
     Dates: start: 20020101
  5. PAXIL [Concomitant]
  6. DEPAKOTE [Concomitant]

REACTIONS (1)
  - DIABETES MELLITUS [None]
